FAERS Safety Report 24317943 (Version 2)
Quarter: 2024Q3

REPORT INFORMATION
  Report Type: Report from Study
  Country: MX (occurrence: MX)
  Receive Date: 20240913
  Receipt Date: 20240917
  Transmission Date: 20241017
  Serious: Yes (Hospitalization, Other)
  Sender: NOVARTIS
  Company Number: MX-002147023-NVSC2024MX182238

PATIENT
  Sex: Male
  Weight: 69 kg

DRUGS (6)
  1. TRILEPTAL [Suspect]
     Active Substance: OXCARBAZEPINE
     Indication: Epilepsy
     Dosage: 1 DOSAGE FORM X 300 MG, EVERY 8 HOURS, MORE THAN 8 YEARS AGO
     Route: 048
  2. TRILEPTAL [Suspect]
     Active Substance: OXCARBAZEPINE
     Dosage: 2 DOSAGE FORM, EVERY 12 HOURS, AFTER 1 YEAR OR 2
     Route: 065
  3. CLONAZEPAM [Concomitant]
     Active Substance: CLONAZEPAM
     Indication: Epilepsy
     Dosage: 1 DOSAGE FORM (2 MG), EVERY 12 HOURS, STARTED 5 OR 4 YEARS AGO
     Route: 048
  4. LEVETIRACETAM [Concomitant]
     Active Substance: LEVETIRACETAM
     Indication: Epilepsy
     Dosage: 1 DOSAGE FORM AND A 0.5 (1000MG), EVERY 12 HOURS
     Route: 048
     Dates: start: 2017
  5. LEVETIRACETAM [Concomitant]
     Active Substance: LEVETIRACETAM
     Indication: Epilepsy
     Dosage: 300 MG
     Route: 048
     Dates: start: 2011, end: 2017
  6. ATEMPERATOR [Concomitant]
     Indication: Epilepsy
     Dosage: UNK
     Route: 048
     Dates: start: 2011, end: 2016

REACTIONS (9)
  - Platelet count decreased [Recovered/Resolved]
  - Malaise [Recovered/Resolved]
  - Febrile convulsion [Unknown]
  - Insomnia [Unknown]
  - Eye swelling [Unknown]
  - Influenza [Unknown]
  - Pyrexia [Unknown]
  - Foot deformity [Not Recovered/Not Resolved]
  - Off label use [Unknown]

NARRATIVE: CASE EVENT DATE: 20160101
